FAERS Safety Report 6132340-2 (Version None)
Quarter: 2009Q1

REPORT INFORMATION
  Report Type: 
  Country: None (occurrence: None)
  Receive Date: 20090325
  Receipt Date: 20090313
  Transmission Date: 20090719
  Serious: Yes (Other)
  Sender: FDA-Public Use
  Company Number: US-WYE-H08575509

PATIENT
  Sex: Female

DRUGS (2)
  1. PREMARIN [Suspect]
     Route: 067
     Dates: start: 20090114, end: 20090218
  2. PREMARIN [Suspect]
     Route: 067
     Dates: start: 20090219, end: 20090225

REACTIONS (6)
  - BREAST ENLARGEMENT [None]
  - BREAST TENDERNESS [None]
  - DRUG DISPENSING ERROR [None]
  - INCORRECT DOSE ADMINISTERED [None]
  - MEDICATION RESIDUE [None]
  - TRANSPLANT REJECTION [None]
